FAERS Safety Report 11009592 (Version 1)
Quarter: 2015Q2

REPORT INFORMATION
  Report Type: Spontaneous
  Country: US (occurrence: US)
  Receive Date: 20150410
  Receipt Date: 20150410
  Transmission Date: 20150821
  Serious: Yes (Other)
  Sender: FDA-Public Use
  Company Number: US-BAYER-2015-094366

PATIENT
  Age: 24 Year
  Sex: Male

DRUGS (2)
  1. CIPRO [Suspect]
     Active Substance: CIPROFLOXACIN HYDROCHLORIDE
     Indication: INFECTION
     Dosage: UNK
  2. FOSFOMYCIN [Suspect]
     Active Substance: FOSFOMYCIN
     Indication: INFECTION
     Dosage: UNK

REACTIONS (9)
  - Tendon pain [None]
  - Fatigue [None]
  - Arthropathy [None]
  - Neuralgia [None]
  - Pain in extremity [None]
  - Abnormal faeces [None]
  - Burnout syndrome [None]
  - Heart rate increased [None]
  - Muscle fatigue [None]
